FAERS Safety Report 8297557 (Version 7)
Quarter: 2012Q4

REPORT INFORMATION
  Report Type: 
  Country: US (occurrence: US)
  Receive Date: 20111219
  Receipt Date: 20121112
  Transmission Date: 20130627
  Serious: Yes (Hospitalization, Other)
  Sender: FDA-Public Use
  Company Number: US-BIOGENIDEC-2011BI047219

PATIENT
  Age: 50 Year
  Sex: Female

DRUGS (2)
  1. TYSABRI [Suspect]
     Indication: MULTIPLE SCLEROSIS
     Route: 042
     Dates: start: 20070827, end: 20111003
  2. AVONEX [Concomitant]
     Indication: MULTIPLE SCLEROSIS

REACTIONS (18)
  - Mycobacterium avium complex infection [Recovered/Resolved]
  - Cytomegalovirus colitis [Recovered/Resolved]
  - Clostridium difficile infection [Recovered/Resolved]
  - Pneumonia klebsiella [Recovered/Resolved]
  - Urinary tract infection [Recovered/Resolved]
  - Gastrointestinal inflammation [Not Recovered/Not Resolved]
  - Malnutrition [Recovered/Resolved]
  - Aphasia [Recovered/Resolved]
  - Intestinal obstruction [Recovered/Resolved]
  - Large intestine perforation [Recovered/Resolved]
  - Dehydration [Recovered/Resolved]
  - Incoherent [Recovered/Resolved]
  - Sepsis [Recovered/Resolved]
  - Blood pressure decreased [Recovered/Resolved]
  - Anaemia [Unknown]
  - Cardiac failure congestive [Unknown]
  - Dysuria [Recovered/Resolved]
  - Nephrolithiasis [Recovered/Resolved]
